FAERS Safety Report 24217005 (Version 1)
Quarter: 2024Q3

REPORT INFORMATION
  Report Type: Spontaneous
  Country: US (occurrence: None)
  Receive Date: 20240815
  Receipt Date: 20240815
  Transmission Date: 20241017
  Serious: Yes (Life-Threatening)
  Sender: Public
  Company Number: None

PATIENT
  Age: 72 Year
  Sex: Male
  Weight: 86.64 kg

DRUGS (1)
  1. JAYPIRCA [Suspect]
     Active Substance: PIRTOBRUTINIB
     Indication: Chronic lymphocytic leukaemia
     Dosage: 200 MG DAILY ORAL
     Route: 048
     Dates: start: 20240802, end: 20240815

REACTIONS (4)
  - Suicidal ideation [None]
  - Energy increased [None]
  - Insomnia [None]
  - Hallucination [None]

NARRATIVE: CASE EVENT DATE: 20240805
